FAERS Safety Report 8624836-6 (Version None)
Quarter: 2012Q3

REPORT INFORMATION
  Report Type: 
  Country: None (occurrence: None)
  Receive Date: 20120827
  Receipt Date: 20120808
  Transmission Date: 20120928
  Serious: No
  Sender: FDA-Public Use
  Company Number: US-009507513-1208USA004125

PATIENT

DRUGS (9)
  1. JANUVIA [Suspect]
     Indication: DIABETES MELLITUS
     Dosage: UNK
     Dates: start: 20120605, end: 20120608
  2. METFORMIN HCL [Concomitant]
     Dosage: UNK
  3. METOPROLOL TARTRATE [Concomitant]
     Dosage: UNK
  4. LANTUS [Concomitant]
     Dosage: UNK
  5. ASPIRIN [Concomitant]
     Dosage: UNK
  6. LISINOPRIL [Concomitant]
     Dosage: UNK
  7. UBIDECARENONE [Concomitant]
  8. PLAVIX LANTIS [Concomitant]
     Dosage: UNK
  9. OMEGA-3-ACID ETHYL ESTERS [Concomitant]

REACTIONS (1)
  - NAUSEA [None]
